FAERS Safety Report 6977910-4 (Version None)
Quarter: 2010Q3

REPORT INFORMATION
  Report Type: 
  Country: None (occurrence: None)
  Receive Date: 20100913
  Receipt Date: 20100902
  Transmission Date: 20110219
  Serious: No
  Sender: FDA-Public Use
  Company Number: US-US-EMD SERONO, INC.-7016922

PATIENT
  Sex: Male

DRUGS (6)
  1. REBIF [Suspect]
     Indication: MULTIPLE SCLEROSIS
     Route: 058
     Dates: start: 20080101
  2. INSULIN [Concomitant]
     Indication: DIABETES MELLITUS
     Dates: end: 20100101
  3. INSULIN [Concomitant]
     Dates: end: 20100101
  4. ENALAPRIL [Concomitant]
     Dates: end: 20100101
  5. ENALAPRIL [Concomitant]
     Dates: start: 20100101
  6. CYMBALTA [Concomitant]
     Indication: DEPRESSION

REACTIONS (7)
  - BLOOD GLUCOSE DECREASED [None]
  - CENTRAL NERVOUS SYSTEM LESION [None]
  - FEELING ABNORMAL [None]
  - GLAUCOMA [None]
  - GLYCOSYLATED HAEMOGLOBIN INCREASED [None]
  - INJECTION SITE NODULE [None]
  - INJECTION SITE PAIN [None]
